FAERS Safety Report 21134421 (Version 2)
Quarter: 2022Q3

REPORT INFORMATION
  Report Type: Spontaneous
  Country: JP (occurrence: JP)
  Receive Date: 20220726
  Receipt Date: 20220831
  Transmission Date: 20221026
  Serious: Yes (Other)
  Sender: FDA-Public Use
  Company Number: JP-NOVARTISPH-NVSJ2022JP093821

PATIENT
  Age: 78 Year
  Sex: Male

DRUGS (2)
  1. BEOVU [Suspect]
     Active Substance: BROLUCIZUMAB-DBLL
     Indication: Age-related macular degeneration
     Dosage: 6 MG
     Route: 031
     Dates: start: 20220624, end: 20220624
  2. DEXAMETHASONE [Concomitant]
     Active Substance: DEXAMETHASONE
     Indication: Product used for unknown indication
     Dosage: UNK
     Route: 047
     Dates: start: 20220624

REACTIONS (9)
  - Uveitis [Recovering/Resolving]
  - Iritis [Recovering/Resolving]
  - Retinal vasculitis [Recovered/Resolved]
  - Retinal perivascular sheathing [Recovering/Resolving]
  - Retinal haemorrhage [Not Recovered/Not Resolved]
  - Visual acuity reduced transiently [Recovering/Resolving]
  - Keratic precipitates [Unknown]
  - Anterior chamber inflammation [Unknown]
  - Vitreous opacities [Recovering/Resolving]

NARRATIVE: CASE EVENT DATE: 20220708
